FAERS Safety Report 15698904 (Version 2)
Quarter: 2020Q3

REPORT INFORMATION
  Report Type: Spontaneous
  Country: US (occurrence: US)
  Receive Date: 20181207
  Receipt Date: 20200827
  Transmission Date: 20201102
  Serious: No
  Sender: FDA-Public Use
  Company Number: US-PFIZER INC-2018500473

PATIENT
  Sex: Female

DRUGS (1)
  1. GENOTROPIN MQ [Suspect]
     Active Substance: SOMATROPIN
     Dosage: 0.4 MG, DAILY

REACTIONS (10)
  - Joint swelling [Unknown]
  - Arthralgia [Unknown]
  - Human epidermal growth factor receptor decreased [Unknown]
  - Blood urea decreased [Unknown]
  - Blood testosterone increased [Unknown]
  - Increased steroid activity [Unknown]
  - Blood thyroid stimulating hormone decreased [Unknown]
  - Asthenia [Unknown]
  - Blood creatinine increased [Unknown]
  - Blood testosterone free increased [Unknown]
